FAERS Safety Report 9536336 (Version 2)
Quarter: 2013Q4

REPORT INFORMATION
  Report Type: Spontaneous
  Country: BE (occurrence: BE)
  Receive Date: 20130919
  Receipt Date: 20131002
  Transmission Date: 20140711
  Serious: Yes (Other)
  Sender: FDA-Public Use
  Company Number: BE-JNJFOC-20130907079

PATIENT
  Age: 45 Year
  Sex: Male
  Weight: 80 kg

DRUGS (1)
  1. NICOTINE MOUTH SPRAY 1 MG [Suspect]
     Indication: PRODUCT USED FOR UNKNOWN INDICATION
     Route: 048

REACTIONS (3)
  - Dyspnoea [Recovered/Resolved]
  - Chest pain [Recovered/Resolved]
  - Anxiety [Recovered/Resolved]
